FAERS Safety Report 26039490 (Version 1)
Quarter: 2025Q4

REPORT INFORMATION
  Report Type: Report from Study
  Country: US (occurrence: US)
  Receive Date: 20251113
  Receipt Date: 20251113
  Transmission Date: 20260118
  Serious: Yes (Other)
  Sender: TAKEDA
  Company Number: US-TAKEDA-2025TUS099559

PATIENT
  Age: 74 Year
  Sex: Male

DRUGS (1)
  1. VEDOLIZUMAB [Suspect]
     Active Substance: VEDOLIZUMAB
     Indication: Colitis ulcerative
     Dosage: 300 MILLIGRAM

REACTIONS (6)
  - Colitis ulcerative [Unknown]
  - Arthritis [Unknown]
  - Dry mouth [Unknown]
  - Latent tuberculosis [Unknown]
  - Pancreatic cyst [Unknown]
  - Leukocytosis [Unknown]
